FAERS Safety Report 8622039-2 (Version None)
Quarter: 2012Q3

REPORT INFORMATION
  Report Type: 
  Country: None (occurrence: None)
  Receive Date: 20120823
  Receipt Date: 20120823
  Transmission Date: 20120928
  Serious: Yes (Life-Threatening)
  Sender: FDA-Public Use
  Company Number: None

PATIENT
  Sex: Female
  Weight: 58.9676 kg

DRUGS (3)
  1. AVELOX [Suspect]
     Indication: UPPER RESPIRATORY TRACT INFECTION
     Dosage: QD, PO
     Route: 048
     Dates: start: 20111215
  2. AVELOX [Suspect]
     Indication: PYREXIA
     Dosage: QD, PO
     Route: 048
     Dates: start: 20111215
  3. AVELOX [Suspect]
     Indication: COUGH
     Dosage: QD, PO
     Route: 048
     Dates: start: 20111215

REACTIONS (4)
  - HYPOTENSION [None]
  - TACHYCARDIA [None]
  - HYPERHIDROSIS [None]
  - INCOHERENT [None]
